FAERS Safety Report 4427381-7 (Version None)
Quarter: 2004Q3

REPORT INFORMATION
  Report Type: 
  Country: None (occurrence: None)
  Receive Date: 20040817
  Receipt Date: 20040729
  Transmission Date: 20050211
  Serious: Yes (Other)
  Sender: FDA-Public Use
  Company Number: PHEH2004US08275

PATIENT
  Age: 59 Year
  Sex: Female

DRUGS (11)
  1. ZOMETA [Suspect]
     Dosage: 4 MG MONTHLY
     Route: 042
     Dates: start: 20020103, end: 20040613
  2. NAVELBINE [Concomitant]
  3. COUMADIN [Concomitant]
     Dosage: 4 MG 4 D WKLY 2 MG 3 D WKLY
  4. FAMVIR [Concomitant]
     Indication: HERPES VIRUS INFECTION
  5. NEXIUM [Concomitant]
     Dosage: 20 MG, QD
  6. EVISTA [Concomitant]
     Dosage: 60 MG, QD
  7. DETROL [Concomitant]
     Dosage: 4 MG, QD
  8. TRAZODONE [Concomitant]
     Dosage: 100 MG, PRN, HS
  9. CLONAZEPAM [Concomitant]
     Dosage: .5 MG, PRN, HS
  10. CELEXA [Concomitant]
     Dosage: 40 MG, QD
  11. NITROFURANTOIN [Concomitant]
     Dosage: 50 MG, QD

REACTIONS (8)
  - OSTEOMYELITIS [None]
  - OSTEONECROSIS [None]
  - PAIN [None]
  - SINUS DISORDER [None]
  - SURGERY [None]
  - SWELLING [None]
  - TOOTH EXTRACTION [None]
  - WOUND DEBRIDEMENT [None]
